FAERS Safety Report 6616171-2 (Version None)
Quarter: 2010Q1

REPORT INFORMATION
  Report Type: 
  Country: None (occurrence: None)
  Receive Date: 20100305
  Receipt Date: 20100222
  Transmission Date: 20100710
  Serious: Yes (Hospitalization, Other)
  Sender: FDA-Public Use
  Company Number: JP-PFIZER INC-2010006732

PATIENT
  Age: 26 Year
  Sex: Male

DRUGS (8)
  1. MYCOBUTIN [Interacting]
     Indication: MYCOBACTERIUM TEST
     Dosage: 300 MG, 1X/DAY
     Route: 048
     Dates: start: 20091225, end: 20100115
  2. MYCOBUTIN [Interacting]
     Dosage: 300 MG, 1X/DAY
     Route: 048
     Dates: start: 20100120, end: 20100202
  3. ZITHROMAX [Suspect]
     Indication: MYCOBACTERIUM TEST
     Dosage: 600 MG, 1X/DAY
     Route: 048
     Dates: start: 20100120
  4. CLARITH [Interacting]
     Indication: MYCOBACTERIUM TEST
     Dosage: 400 MG, 1X/DAY
     Route: 048
     Dates: start: 20091225, end: 20100115
  5. EBUTOL [Suspect]
     Indication: MYCOBACTERIUM TEST
     Dosage: 1000 MG, 1X/DAY
     Route: 048
     Dates: start: 20091225, end: 20100115
  6. EBUTOL [Suspect]
     Dosage: UNK
     Route: 048
     Dates: start: 20100120
  7. TRUVADA [Suspect]
     Indication: HIV INFECTION
     Dosage: UNK
     Route: 048
     Dates: start: 20091112
  8. ISENTRESS [Suspect]
     Indication: HIV INFECTION
     Dosage: UNK
     Route: 048
     Dates: start: 20091112

REACTIONS (2)
  - DRUG INTERACTION [None]
  - NEUTROPHIL COUNT DECREASED [None]
